FAERS Safety Report 23035216 (Version 3)
Quarter: 2024Q2

REPORT INFORMATION
  Report Type: Report from Study
  Country: CA (occurrence: CA)
  Receive Date: 20231005
  Receipt Date: 20240531
  Transmission Date: 20240715
  Serious: Yes (Hospitalization, Disabling, Other)
  Sender: FDA-Public Use
  Company Number: CA-002147023-NVSC2023CA020189

PATIENT
  Age: 64 Year
  Sex: Female

DRUGS (5)
  1. HYRIMOZ [Suspect]
     Active Substance: ADALIMUMAB-ADAZ
     Indication: Crohn^s disease
     Dosage: 40 MG
     Route: 058
     Dates: start: 20220516
  2. HYRIMOZ [Suspect]
     Active Substance: ADALIMUMAB-ADAZ
     Dosage: 40 MG
     Route: 058
     Dates: start: 20230116
  3. MYRBETRIQ [Suspect]
     Active Substance: MIRABEGRON
     Indication: Product used for unknown indication
     Dosage: TABLET (EXTENDED- RELEASE)
     Route: 065
  4. SOLIFENACIN [Suspect]
     Active Substance: SOLIFENACIN
     Indication: Product used for unknown indication
     Dosage: 10 MG
     Route: 065
  5. SOLIFENACIN [Suspect]
     Active Substance: SOLIFENACIN
     Dosage: 5 MG
     Route: 065

REACTIONS (19)
  - Vocal cord disorder [Unknown]
  - Syncope [Unknown]
  - Memory impairment [Unknown]
  - Inappropriate schedule of product administration [Unknown]
  - Diarrhoea [Not Recovered/Not Resolved]
  - Uterine polyp [Unknown]
  - Pulmonary pain [Unknown]
  - Asthenia [Unknown]
  - Nausea [Unknown]
  - Abdominal pain [Unknown]
  - Pyrexia [Unknown]
  - Cough [Unknown]
  - Crohn^s disease [Unknown]
  - Disability [Not Recovered/Not Resolved]
  - Dry mouth [Not Recovered/Not Resolved]
  - Insomnia [Not Recovered/Not Resolved]
  - Dry throat [Not Recovered/Not Resolved]
  - Sleep apnoea syndrome [Not Recovered/Not Resolved]
  - Pain [Not Recovered/Not Resolved]

NARRATIVE: CASE EVENT DATE: 20221001
